FAERS Safety Report 7561276-5 (Version None)
Quarter: 2011Q2

REPORT INFORMATION
  Report Type: 
  Country: None (occurrence: None)
  Receive Date: 20110621
  Receipt Date: 20101216
  Transmission Date: 20111010
  Serious: No
  Sender: FDA-Public Use
  Company Number: US-ASTRAZENECA-2010SE59629

PATIENT
  Age: 51 Year
  Sex: Male
  Weight: 80.7 kg

DRUGS (6)
  1. SUDAFED 12 HOUR [Interacting]
     Route: 065
  2. ALBUTEROL SULFATE AUTOHALER [Interacting]
     Dosage: AS REQUIRED
     Route: 065
  3. NASONEX [Concomitant]
     Indication: MULTIPLE ALLERGIES
     Route: 065
  4. PULMICORT FLEXHALER [Suspect]
     Indication: ASTHMA
     Route: 055
     Dates: start: 20101201
  5. SINGULAIR [Concomitant]
     Route: 065
  6. BENADRYL [Concomitant]
     Dosage: AT NIGHT
     Route: 065

REACTIONS (4)
  - HEART RATE INCREASED [None]
  - NAUSEA [None]
  - DRUG INTERACTION [None]
  - BLOOD PRESSURE INCREASED [None]
